FAERS Safety Report 9789659 (Version 3)
Quarter: 2014Q2

REPORT INFORMATION
  Report Type: Spontaneous
  Country: US (occurrence: US)
  Receive Date: 20131231
  Receipt Date: 20140522
  Transmission Date: 20141212
  Serious: Yes (Hospitalization)
  Sender: FDA-Public Use
  Company Number: US-BAYER-2013-158651

PATIENT
  Age: 21 Year
  Sex: Female
  Weight: 54 kg

DRUGS (6)
  1. MIRENA [Suspect]
     Indication: CONTRACEPTION
     Dosage: 20 MCG/24HR, CONT
     Route: 015
     Dates: start: 20081117, end: 20130308
  2. MOTRIN [Concomitant]
  3. IBUPROFEN [Concomitant]
     Dosage: UNK
     Dates: start: 20130221
  4. TRAMADOL [Concomitant]
     Indication: PAIN
     Dosage: 50 MG, TABLET 4 TIMES DAILY AS NEEDED
     Dates: start: 20130221
  5. FLAGYL [Concomitant]
     Indication: BACTERIAL VAGINOSIS
     Dosage: 500 MG, UNK
     Dates: start: 20130221
  6. DOXYCYCLINE [Concomitant]
     Dosage: UNK
     Dates: start: 20130304

REACTIONS (8)
  - Embedded device [None]
  - Injury [None]
  - Medical device discomfort [None]
  - Medical device pain [None]
  - Vaginal haemorrhage [None]
  - Abdominal pain lower [None]
  - Dyspareunia [None]
  - Procedural pain [None]
